FAERS Safety Report 18056523 (Version 2)
Quarter: 2020Q4

REPORT INFORMATION
  Report Type: Spontaneous
  Country: JP (occurrence: JP)
  Receive Date: 20200722
  Receipt Date: 20201125
  Transmission Date: 20210113
  Serious: Yes (Hospitalization, Other)
  Sender: FDA-Public Use
  Company Number: JP-ELI_LILLY_AND_COMPANY-JP202007007417

PATIENT
  Age: 64 Year
  Sex: Male

DRUGS (2)
  1. OLUMIANT [Suspect]
     Active Substance: BARICITINIB
     Indication: PRODUCT USED FOR UNKNOWN INDICATION
     Dosage: 4 MG, DAILY
     Route: 048
     Dates: start: 20191114
  2. PREDNISOLONE. [Concomitant]
     Active Substance: PREDNISOLONE
     Indication: OSTEOPOROSIS

REACTIONS (2)
  - Herpes zoster oticus [Recovered/Resolved]
  - Herpes zoster [Unknown]

NARRATIVE: CASE EVENT DATE: 20200615
